FAERS Safety Report 8281722-1 (Version None)
Quarter: 2012Q2

REPORT INFORMATION
  Report Type: 
  Country: None (occurrence: None)
  Receive Date: 20120410
  Receipt Date: 20120328
  Transmission Date: 20120825
  Serious: Yes (Hospitalization)
  Sender: FDA-Public Use
  Company Number: DSJ-2012-01501

PATIENT
  Age: 56 Year
  Sex: Female

DRUGS (5)
  1. BENICAR [Suspect]
     Indication: HYPERTENSION
     Dosage: SEE IMAGE
     Route: 048
     Dates: start: 20110801, end: 20111001
  2. BENICAR [Suspect]
     Indication: HYPERTENSION
     Dosage: SEE IMAGE
     Route: 048
     Dates: start: 20111001, end: 20120101
  3. BENICAR [Suspect]
     Indication: HYPERTENSION
     Dosage: SEE IMAGE
     Route: 048
     Dates: start: 20120101
  4. TRAMADOL HCL [Concomitant]
  5. PREGABALIN [Concomitant]

REACTIONS (5)
  - DRUG INEFFECTIVE [None]
  - DRUG ADMINISTRATION ERROR [None]
  - SPINAL OPERATION [None]
  - INSOMNIA [None]
  - MUSCLE SPASMS [None]
